FAERS Safety Report 10220034 (Version 1)
Quarter: 2014Q2

REPORT INFORMATION
  Report Type: Spontaneous
  Country: MY (occurrence: MY)
  Receive Date: 20140605
  Receipt Date: 20140605
  Transmission Date: 20141212
  Serious: Yes (Death)
  Sender: FDA-Public Use
  Company Number: MY-B.I. PHARMACEUTICALS,INC./RIDGEFIELD-2014-BI-24940MD

PATIENT
  Age: 82 Year
  Sex: Female

DRUGS (8)
  1. PRADAXA [Suspect]
     Indication: CEREBROVASCULAR ACCIDENT PROPHYLAXIS
     Dosage: 220 MG
     Route: 048
  2. FRUSEMIDE [Concomitant]
     Route: 065
  3. METFORMIN [Concomitant]
     Route: 065
  4. SIMVASTATIN [Concomitant]
     Route: 065
  5. METOPROLOL [Concomitant]
     Route: 065
  6. POTASSIUM CHLORIDE [Concomitant]
     Route: 065
  7. ASPIRIN/GLYCINE [Concomitant]
     Route: 065
  8. PERINDOPRIL [Concomitant]
     Route: 065

REACTIONS (2)
  - International normalised ratio increased [Fatal]
  - Prothrombin time prolonged [Fatal]
